FAERS Safety Report 8594837 (Version 2)
Quarter: 2014Q4

REPORT INFORMATION
  Report Type: Spontaneous
  Country: US (occurrence: US)
  Receive Date: 20120604
  Receipt Date: 20141014
  Transmission Date: 20150529
  Serious: Yes (Other)
  Sender: FDA-Public Use
  Company Number: US-ASTRAZENECA-2012SE32864

PATIENT
  Age: 53 Year
  Sex: Male

DRUGS (11)
  1. ZANTAC [Concomitant]
     Active Substance: RANITIDINE HYDROCHLORIDE
  2. FIORCET [Concomitant]
  3. NEXIUM [Suspect]
     Active Substance: ESOMEPRAZOLE MAGNESIUM
     Route: 048
  4. CLONIDINE. [Concomitant]
     Active Substance: CLONIDINE
     Dosage: 0.2 UNK
  5. METOPROLOL TARTRATE. [Concomitant]
     Active Substance: METOPROLOL TARTRATE
  6. PRILOSEC [Interacting]
     Active Substance: OMEPRAZOLE MAGNESIUM
     Route: 048
  7. COUMADIN [Concomitant]
     Active Substance: WARFARIN SODIUM
  8. TOPAMAX [Concomitant]
     Active Substance: TOPIRAMATE
     Dosage: 15 MG UNK
  9. XANAX [Concomitant]
     Active Substance: ALPRAZOLAM
     Dosage: 0.5 UNK
  10. PLAVIX [Interacting]
     Active Substance: CLOPIDOGREL BISULFATE
     Route: 065
  11. ASPIRIN. [Concomitant]
     Active Substance: ASPIRIN

REACTIONS (6)
  - Cerebrovascular accident [Unknown]
  - Abasia [Unknown]
  - Drug ineffective [Unknown]
  - Impaired self-care [Unknown]
  - Drug interaction [Unknown]
  - Intentional product misuse [Unknown]

NARRATIVE: CASE EVENT DATE: 2011
